FAERS Safety Report 6991977-9 (Version None)
Quarter: 2010Q3

REPORT INFORMATION
  Report Type: 
  Country: None (occurrence: None)
  Receive Date: 20100917
  Receipt Date: 20100909
  Transmission Date: 20110219
  Serious: Yes (Hospitalization)
  Sender: FDA-Public Use
  Company Number: US-US-EMD SERONO, INC.-232610J10USA

PATIENT
  Sex: Female
  Weight: 66 kg

DRUGS (2)
  1. REBIF [Suspect]
     Indication: MULTIPLE SCLEROSIS
     Route: 058
     Dates: start: 20070207
  2. REBIF [Suspect]
     Route: 058

REACTIONS (5)
  - EXTREMITY NECROSIS [None]
  - INJECTION SITE ERYTHEMA [None]
  - PAIN [None]
  - POOR PERIPHERAL CIRCULATION [None]
  - SKIN ULCER [None]
